FAERS Safety Report 6834874-1 (Version None)
Quarter: 2010Q3

REPORT INFORMATION
  Report Type: 
  Country: None (occurrence: None)
  Receive Date: 20100712
  Receipt Date: 20070529
  Transmission Date: 20110219
  Serious: Yes (Other)
  Sender: FDA-Public Use
  Company Number: US-PFIZER INC-2007034265

PATIENT

DRUGS (1)
  1. CHANTIX [Suspect]
     Dates: start: 20070412, end: 20070414

REACTIONS (4)
  - INSOMNIA [None]
  - PRURITUS [None]
  - SWELLING [None]
  - URTICARIA [None]
